FAERS Safety Report 7966661-5 (Version None)
Quarter: 2011Q4

REPORT INFORMATION
  Report Type: 
  Country: None (occurrence: None)
  Receive Date: 20111209
  Receipt Date: 20111130
  Transmission Date: 20120403
  Serious: No
  Sender: FDA-Public Use
  Company Number: US-BIOGENIDEC-2011BI045550

PATIENT
  Sex: Male

DRUGS (1)
  1. TYSABRI [Suspect]
     Indication: MULTIPLE SCLEROSIS
     Route: 042
     Dates: start: 20100301

REACTIONS (10)
  - STRESS [None]
  - WEIGHT DECREASED [None]
  - MULTIPLE SCLEROSIS [None]
  - MUSCULOSKELETAL DISORDER [None]
  - MUSCLE TIGHTNESS [None]
  - POOR PERIPHERAL CIRCULATION [None]
  - SINUSITIS [None]
  - MUSCULAR WEAKNESS [None]
  - PARAESTHESIA [None]
  - KIDNEY INFECTION [None]
